FAERS Safety Report 6122349-7 (Version None)
Quarter: 2009Q1

REPORT INFORMATION
  Report Type: 
  Country: None (occurrence: None)
  Receive Date: 20090318
  Receipt Date: 20090312
  Transmission Date: 20090719
  Serious: Yes (Hospitalization)
  Sender: FDA-Public Use
  Company Number: JP-ASTRAZENECA-2009AP01695

PATIENT
  Age: 57 Year
  Sex: Female

DRUGS (3)
  1. ARIMIDEX [Suspect]
     Indication: BREAST CANCER
     Route: 048
     Dates: end: 20081201
  2. MUCOSTA [Concomitant]
     Route: 048
  3. VITAMIN PREPARATIONS [Concomitant]
     Route: 065

REACTIONS (1)
  - LEUKAEMIA [None]
